FAERS Safety Report 23144586 (Version 2)
Quarter: 2023Q4

REPORT INFORMATION
  Report Type: Spontaneous
  Country: US (occurrence: US)
  Receive Date: 20231103
  Receipt Date: 20231226
  Transmission Date: 20240110
  Serious: Yes (Other)
  Sender: FDA-Public Use
  Company Number: US-AMGEN-USASP2023194124

PATIENT
  Age: 9 Year
  Sex: Female

DRUGS (1)
  1. FILGRASTIM [Suspect]
     Active Substance: FILGRASTIM
     Indication: Prophylaxis
     Dosage: 5 MICROGRAM/KILOGRAM
     Route: 042

REACTIONS (3)
  - Capillary leak syndrome [Recovered/Resolved]
  - Cardiomegaly [Unknown]
  - Atelectasis [Unknown]
